FAERS Safety Report 8151404-5 (Version None)
Quarter: 2012Q1

REPORT INFORMATION
  Report Type: 
  Country: None (occurrence: None)
  Receive Date: 20120220
  Receipt Date: 20120210
  Transmission Date: 20120608
  Serious: Yes (Hospitalization)
  Sender: FDA-Public Use
  Company Number: US-ASTRAZENECA-2012SE09677

PATIENT
  Sex: Male

DRUGS (6)
  1. ASPIRIN [Concomitant]
     Dosage: LOW DOSE
  2. ATORVASTATIN [Concomitant]
  3. BETA-BLOCKER MEDICATION [Concomitant]
  4. BRILINTA [Suspect]
     Route: 048
  5. LISINOPRIL [Concomitant]
  6. PLAVIX [Concomitant]
     Indication: PLATELET COUNT

REACTIONS (3)
  - ELECTROCARDIOGRAM PR PROLONGATION [None]
  - BRADYCARDIA [None]
  - ATRIOVENTRICULAR DISSOCIATION [None]
